FAERS Safety Report 8391959-9 (Version None)
Quarter: 2012Q2

REPORT INFORMATION
  Report Type: 
  Country: None (occurrence: None)
  Receive Date: 20120529
  Receipt Date: 20120528
  Transmission Date: 20120825
  Serious: Yes (Other)
  Sender: FDA-Public Use
  Company Number: GB-VIIV HEALTHCARE LIMITED-B0804044A

PATIENT
  Age: 43 Year

DRUGS (4)
  1. ABACAVIR SULFATE/LAMIVUDINE [Suspect]
  2. RITONAVIR [Suspect]
  3. ATAZANAVIR [Suspect]
  4. EFAVIRENZ [Suspect]

REACTIONS (2)
  - SLEEP DISORDER [None]
  - JAUNDICE [None]
